FAERS Safety Report 8997640 (Version 1)
Quarter: 2013Q1

REPORT INFORMATION
  Report Type: Spontaneous
  Country: DK (occurrence: DK)
  Receive Date: 20130104
  Receipt Date: 20130104
  Transmission Date: 20140127
  Serious: Yes (Disabling)
  Sender: FDA-Public Use
  Company Number: DK-009507513-1301DNK000601

PATIENT
  Age: 55 Year
  Sex: Female

DRUGS (2)
  1. RIBAVIRIN [Suspect]
     Indication: CHRONIC HEPATITIS C
     Route: 048
     Dates: start: 200802, end: 200808
  2. PEGINTERFERON ALFA-2B [Suspect]
     Route: 065
     Dates: start: 200802, end: 200808

REACTIONS (10)
  - Mental disorder [Unknown]
  - Fatigue [Unknown]
  - Alopecia [Unknown]
  - Dry mouth [Unknown]
  - Pruritus [Unknown]
  - Rash [Unknown]
  - Memory impairment [Unknown]
  - Disturbance in attention [Unknown]
  - Skin disorder [Unknown]
  - Cognitive disorder [Unknown]
